FAERS Safety Report 9168373 (Version 1)
Quarter: 2013Q1

REPORT INFORMATION
  Report Type: Spontaneous
  Country: JP (occurrence: None)
  Receive Date: 20130308
  Receipt Date: 20130308
  Transmission Date: 20140127
  Serious: Yes (Other)
  Sender: FDA-Public Use
  Company Number: 2013-000628

PATIENT
  Sex: 0

DRUGS (1)
  1. ACTONEL [Suspect]
     Route: 048
     Dates: start: 2008

REACTIONS (2)
  - Retinal detachment [None]
  - Macular degeneration [None]
